FAERS Safety Report 5921079-1 (Version None)
Quarter: 2008Q4

REPORT INFORMATION
  Report Type: 
  Country: None (occurrence: None)
  Receive Date: 20081016
  Receipt Date: 20081008
  Transmission Date: 20090506
  Serious: Yes (Other)
  Sender: FDA-Public Use
  Company Number: US-PFIZER INC-2008084615

PATIENT

DRUGS (2)
  1. XALATAN [Suspect]
  2. CHEMOTHERAPY NOS [Interacting]
     Indication: NEOPLASM MALIGNANT

REACTIONS (4)
  - DRUG INTERACTION [None]
  - INTRAOCULAR PRESSURE INCREASED [None]
  - MALIGNANT MELANOMA [None]
  - VISUAL FIELD DEFECT [None]
